FAERS Safety Report 8983077 (Version 1)
Quarter: 2012Q4

REPORT INFORMATION
  Report Type: 
  Country: JP (occurrence: JP)
  Receive Date: 20121224
  Receipt Date: 20121224
  Transmission Date: 20130627
  Serious: Yes (Hospitalization)
  Sender: FDA-Public Use
  Company Number: JP-009507513-1209JPN001958

PATIENT
  Age: 77 Year
  Sex: Female

DRUGS (9)
  1. FOSAMAC TABLETS 35MG [Suspect]
     Indication: OSTEOPOROSIS
     Dosage: 35 mg, qw
     Route: 048
     Dates: start: 2005, end: 2012
  2. VESICARE [Concomitant]
     Dosage: Unk
     Route: 048
  3. ONEALFA [Concomitant]
     Indication: OSTEOPOROSIS
     Dosage: 1 Microgram, qd
     Route: 048
  4. METHYCOBAL [Concomitant]
     Dosage: UNK
     Route: 048
  5. OPALMON [Concomitant]
     Dosage: UNK
     Route: 048
  6. LOXONIN [Concomitant]
     Dosage: UNK
     Route: 048
  7. MUCOSTA [Concomitant]
     Dosage: UNK
     Route: 048
  8. ACINON [Concomitant]
     Dosage: UNK
     Route: 048
  9. LENDORMIN [Suspect]
     Dosage: UNK
     Route: 048

REACTIONS (5)
  - Femur fracture [Recovering/Resolving]
  - Exostosis [Unknown]
  - Exostosis [Unknown]
  - Pain [Unknown]
  - Surgery [Unknown]
